FAERS Safety Report 17810284 (Version 1)
Quarter: 2020Q2

REPORT INFORMATION
  Report Type: Spontaneous
  Country: DK (occurrence: DK)
  Receive Date: 20200520
  Receipt Date: 20200520
  Transmission Date: 20200714
  Serious: Yes (Hospitalization)
  Sender: FDA-Public Use
  Company Number: NVSC2020DK136741

PATIENT
  Age: 8 Year
  Sex: Female

DRUGS (4)
  1. PURINETHOL [Suspect]
     Active Substance: MERCAPTOPURINE
     Indication: ACUTE LYMPHOCYTIC LEUKAEMIA
     Dosage: DOSIS: UKENDT
     Route: 048
     Dates: start: 20150505
  2. ASPARAGINASE [Suspect]
     Active Substance: ASPARAGINASE
     Indication: ACUTE LYMPHOCYTIC LEUKAEMIA
     Dosage: STYRKE: 10000 IE, DOSIS: UKENDT
     Route: 065
     Dates: start: 20150505
  3. METHOTREXATE. [Suspect]
     Active Substance: METHOTREXATE
     Indication: ACUTE LYMPHOCYTIC LEUKAEMIA
     Dosage: DOSIS: UKENDT
     Route: 065
     Dates: start: 20150505
  4. ONCOVIN [Suspect]
     Active Substance: VINCRISTINE SULFATE
     Indication: ACUTE LYMPHOCYTIC LEUKAEMIA
     Dosage: DOSIS: UKENDT
     Route: 065
     Dates: start: 20150505

REACTIONS (8)
  - Abdominal distension [Recovered/Resolved]
  - Ascites [Recovered/Resolved]
  - Vomiting [Recovered/Resolved]
  - Musculoskeletal chest pain [Recovered/Resolved]
  - Dyspnoea [Recovered/Resolved]
  - Pancreatitis [Recovered/Resolved]
  - Systemic inflammatory response syndrome [Recovered/Resolved]
  - Abdominal pain upper [Recovered/Resolved]

NARRATIVE: CASE EVENT DATE: 20151123
